FAERS Safety Report 5835403-1 (Version None)
Quarter: 2008Q3

REPORT INFORMATION
  Report Type: 
  Country: None (occurrence: None)
  Receive Date: 20080806
  Receipt Date: 20080730
  Transmission Date: 20090109
  Serious: Yes (Other)
  Sender: FDA-Public Use
  Company Number: JP-AVENTIS-200812157JP

PATIENT
  Age: 32 Year
  Sex: Female

DRUGS (5)
  1. LANTUS [Suspect]
     Route: 058
     Dates: start: 20040201
  2. OPTICLIK (INSULIN INJECTION PEN) [Suspect]
  3. NOVORAPID [Concomitant]
     Dates: start: 20060401
  4. INSULIN LISPRO [Concomitant]
     Dates: start: 20040201
  5. NOVOLIN N [Concomitant]
     Dates: start: 20080401

REACTIONS (3)
  - ANTI-INSULIN ANTIBODY POSITIVE [None]
  - DRUG HYPERSENSITIVITY [None]
  - HYPERGLYCAEMIA [None]
